FAERS Safety Report 22239497 (Version 1)
Quarter: 2023Q2

REPORT INFORMATION
  Report Type: Spontaneous
  Country: SE (occurrence: SE)
  Receive Date: 20230421
  Receipt Date: 20230421
  Transmission Date: 20230721
  Serious: Yes (Other)
  Sender: FDA-Public Use
  Company Number: SE-PFIZER INC-PV202300073092

PATIENT
  Age: 37 Year
  Sex: Male

DRUGS (1)
  1. INFLIXIMAB [Suspect]
     Active Substance: INFLIXIMAB
     Indication: Colitis ulcerative
     Dosage: UNK
     Route: 065
     Dates: end: 20211202

REACTIONS (3)
  - Psoriatic arthropathy [Unknown]
  - Injury [Unknown]
  - Psoriasis [Unknown]

NARRATIVE: CASE EVENT DATE: 20211216
